FAERS Safety Report 8481297-8 (Version None)
Quarter: 2012Q2

REPORT INFORMATION
  Report Type: 
  Country: None (occurrence: None)
  Receive Date: 20120626
  Receipt Date: 20120626
  Transmission Date: 20120825
  Serious: Yes (Life-Threatening)
  Sender: FDA-Public Use
  Company Number: None

PATIENT
  Age: 77 Year
  Sex: Male
  Weight: 77.1 kg

DRUGS (1)
  1. CLINDAMYCIN [Suspect]
     Indication: LOCALISED INFECTION
     Dosage: 300 MG EVERY DAY PO
     Route: 048
     Dates: start: 20120120, end: 20120124

REACTIONS (3)
  - DYSPHAGIA [None]
  - SWELLING FACE [None]
  - DROOLING [None]
